FAERS Safety Report 4990633-6 (Version None)
Quarter: 2006Q2

REPORT INFORMATION
  Report Type: 
  Country: None (occurrence: None)
  Receive Date: 20060427
  Receipt Date: 20060414
  Transmission Date: 20061013
  Serious: Yes (Other)
  Sender: FDA-Public Use
  Company Number: GXBR2006US00926

PATIENT
  Sex: Female
  Weight: 3.1 kg

DRUGS (2)
  1. RIBAVIRIN [Suspect]
     Dosage: FETAL DRUG EXPOSURE VIA FATHER
     Route: 064
  2. PEGASYS [Suspect]
     Dosage: FETAL DRUG EXPOSURE VIA FATHER

REACTIONS (5)
  - DACRYOSTENOSIS CONGENITAL [None]
  - EYE DISCHARGE [None]
  - JAUNDICE NEONATAL [None]
  - ORAL CANDIDIASIS [None]
  - TRANSMISSION OF DRUG VIA SEMEN [None]
